FAERS Safety Report 4440942-4 (Version None)
Quarter: 2004Q3

REPORT INFORMATION
  Report Type: 
  Country: None (occurrence: None)
  Receive Date: 20040728
  Receipt Date: 20040413
  Transmission Date: 20050211
  Serious: No
  Sender: FDA-Public Use
  Company Number: USA040464773

PATIENT
  Age: 9 Year
  Sex: Female
  Weight: 50 kg

DRUGS (2)
  1. STRATTERA [Suspect]
     Dosage: 60 MG DAY
  2. ZYRTEC [Concomitant]

REACTIONS (2)
  - MYDRIASIS [None]
  - PALPITATIONS [None]
